FAERS Safety Report 14997202 (Version 1)
Quarter: 2018Q2

REPORT INFORMATION
  Report Type: Spontaneous
  Country: US (occurrence: US)
  Receive Date: 20180522
  Receipt Date: 20180522
  Transmission Date: 20180711
  Serious: Yes (Other)
  Sender: FDA-Public Use
  Company Number: None

PATIENT
  Age: 74 Year
  Sex: Male
  Weight: 82.35 kg

DRUGS (9)
  1. PROSTATE PLUS HEALTH COMPLEX [Concomitant]
  2. COQ10 [Concomitant]
     Active Substance: UBIDECARENONE
  3. LATANOPROST. [Concomitant]
     Active Substance: LATANOPROST
  4. OCUVITE [Concomitant]
     Active Substance: VITAMINS
  5. DORZOLAMIDE HCL/TIMOLOL MALEATE [Concomitant]
     Active Substance: DORZOLAMIDE HYDROCHLORIDE\TIMOLOL MALEATE
  6. SIMVASTATIN. [Concomitant]
     Active Substance: SIMVASTATIN
  7. BRIMONIDINE [Suspect]
     Active Substance: BRIMONIDINE TARTRATE
     Indication: INTRAOCULAR PRESSURE TEST
     Dosage: ?          QUANTITY:1 GTT DROP(S);?
     Route: 047
     Dates: start: 20180503, end: 20180514
  8. METFORMIN [Concomitant]
     Active Substance: METFORMIN HYDROCHLORIDE
  9. LOW DOSE ASPIRIN [Concomitant]
     Active Substance: ASPIRIN

REACTIONS (3)
  - Instillation site erythema [None]
  - Drug ineffective [None]
  - Instillation site discomfort [None]

NARRATIVE: CASE EVENT DATE: 20180506
